FAERS Safety Report 6409243-9 (Version None)
Quarter: 2009Q4

REPORT INFORMATION
  Report Type: 
  Country: None (occurrence: None)
  Receive Date: 20091019
  Receipt Date: 20091019
  Transmission Date: 20100525
  Serious: Yes (Other)
  Sender: FDA-Public Use
  Company Number: None

PATIENT
  Age: 42 Year
  Sex: Male
  Weight: 99.7913 kg

DRUGS (1)
  1. NUVIGIL [Suspect]
     Indication: SOMNOLENCE
     Dosage: 150MG QD PO 1 MONTH NOT PRN
     Route: 048
     Dates: start: 20090901, end: 20091016

REACTIONS (3)
  - ERYTHEMA [None]
  - RASH [None]
  - SKIN WARM [None]
